FAERS Safety Report 6987146 (Version 19)
Quarter: 2012Q4

REPORT INFORMATION
  Report Type: 
  Country: CA (occurrence: CA)
  Receive Date: 20090505
  Receipt Date: 20121031
  Transmission Date: 20130627
  Serious: Yes (Death, Hospitalization, Other)
  Sender: FDA-Public Use
  Company Number: PHHY2009CA16639

PATIENT
  Sex: Female

DRUGS (18)
  1. SANDOSTATIN LAR [Suspect]
     Indication: CARCINOID TUMOUR
     Dosage: 40 mg every 4 weeks
     Route: 030
     Dates: start: 199004
  2. SANDOSTATIN LAR [Suspect]
     Dosage: 50 mg every 4 weeks
     Route: 030
     Dates: start: 20001106
  3. SANDOSTATIN LAR [Suspect]
     Dosage: 50 mg, QMO
     Route: 030
  4. SANDOSTATIN LAR [Suspect]
     Dosage: 60 mg, QMO
     Route: 030
  5. METFORMIN [Concomitant]
  6. METOPROLOL [Concomitant]
  7. LASIX [Concomitant]
  8. ZANTAC [Concomitant]
     Dosage: 75 mg, UNK
     Route: 048
  9. INSULIN [Concomitant]
  10. COZAAR [Concomitant]
     Dosage: 50 ml, UNK
  11. PARIET [Concomitant]
  12. FUROSEMIDE [Concomitant]
  13. POTASSIUM [Concomitant]
  14. ASPIRIN [Concomitant]
  15. LOSARTAN [Concomitant]
  16. RABEPRAZOLE [Concomitant]
  17. ACETAMINOPHEN [Concomitant]
  18. METHOTREXATE [Concomitant]
     Indication: PSORIATIC ARTHROPATHY

REACTIONS (25)
  - Death [Fatal]
  - Multi-organ failure [Unknown]
  - Coronary artery disease [Recovering/Resolving]
  - Bone marrow failure [Recovering/Resolving]
  - Drug withdrawal syndrome [Unknown]
  - Diarrhoea [Recovering/Resolving]
  - Tremor [Recovering/Resolving]
  - Disorientation [Recovering/Resolving]
  - Cardiac failure [Not Recovered/Not Resolved]
  - Dyspnoea [Not Recovered/Not Resolved]
  - Fall [Recovered/Resolved]
  - Concussion [Recovered/Resolved]
  - Injury [Recovered/Resolved]
  - Sciatica [Unknown]
  - Balance disorder [Unknown]
  - Haemoglobin decreased [Unknown]
  - Diabetes mellitus inadequate control [Unknown]
  - Oedema peripheral [Not Recovered/Not Resolved]
  - Flushing [Unknown]
  - Asthenia [Unknown]
  - Fatigue [Not Recovered/Not Resolved]
  - Dizziness [Unknown]
  - Flatulence [Unknown]
  - Drug effect decreased [Unknown]
  - Muscular weakness [Unknown]
